FAERS Safety Report 6454097-8 (Version None)
Quarter: 2009Q4

REPORT INFORMATION
  Report Type: 
  Country: None (occurrence: None)
  Receive Date: 20091117
  Receipt Date: 20091103
  Transmission Date: 20100525
  Serious: Yes (Hospitalization)
  Sender: FDA-Public Use
  Company Number: 8053156

PATIENT
  Sex: Female

DRUGS (4)
  1. KEPPRA [Suspect]
     Indication: CONVULSION
     Dosage: PO
     Route: 048
  2. DILANTIN [Suspect]
     Indication: CONVULSION
     Dosage: PO
     Route: 048
  3. COCAINE [Suspect]
  4. NEXIUM [Concomitant]

REACTIONS (6)
  - CAESAREAN SECTION [None]
  - DRUG EXPOSURE DURING PREGNANCY [None]
  - DRUG SCREEN POSITIVE [None]
  - PREGNANCY [None]
  - PREMATURE LABOUR [None]
  - VAGINAL HAEMORRHAGE [None]
